FAERS Safety Report 14056665 (Version 3)
Quarter: 2017Q4

REPORT INFORMATION
  Report Type: Spontaneous
  Country: JP (occurrence: JP)
  Receive Date: 20171006
  Receipt Date: 20171025
  Transmission Date: 20180321
  Serious: Yes (Hospitalization, Other)
  Sender: FDA-Public Use
  Company Number: JP-PFIZER INC-2017383142

PATIENT
  Age: 85 Year
  Sex: Male
  Weight: 52 kg

DRUGS (14)
  1. RUEFRIEN [Concomitant]
     Active Substance: GLUTAMINE\SODIUM GUALENATE
     Indication: CHRONIC GASTRITIS
     Dosage: 2 G/DAY, THRICE DAILY
     Route: 048
  2. PURSENNID /00571902/ [Concomitant]
     Active Substance: SENNOSIDES A AND B
     Indication: CONSTIPATION
     Dosage: 24 MG, 1X/DAY
     Route: 048
     Dates: start: 20170622
  3. CELECOX [Suspect]
     Active Substance: CELECOXIB
     Indication: INTERVERTEBRAL DISC DISORDER
     Dosage: 100 MG, TWICE DAILY, AFTER BREAKFAST AND DINNER
     Route: 048
     Dates: start: 20170728, end: 20170810
  4. GASTER [Suspect]
     Active Substance: FAMOTIDINE
     Dosage: UNK
     Route: 048
  5. ARTIST [Concomitant]
     Active Substance: CARVEDILOL
     Indication: HYPERTROPHIC CARDIOMYOPATHY
     Dosage: 10 MG, 1X/DAY
     Route: 048
     Dates: start: 20080616
  6. ARTIST [Concomitant]
     Active Substance: CARVEDILOL
     Indication: HYPERTENSION
  7. ARTIST [Concomitant]
     Active Substance: CARVEDILOL
     Indication: CARDIAC FAILURE CHRONIC
  8. LAC-B [Concomitant]
     Active Substance: BIFIDOBACTERIUM SPP.
     Indication: ENTEROCOLITIS
     Dosage: 1 G, 3X/DAY
     Route: 048
     Dates: start: 20080616
  9. ZOLPIDEM [Concomitant]
     Active Substance: ZOLPIDEM\ZOLPIDEM TARTRATE
     Indication: INSOMNIA
     Dosage: 5 MG, 1X/DAY
     Route: 048
  10. MYSLEE [Suspect]
     Active Substance: ZOLPIDEM TARTRATE
     Indication: INSOMNIA
     Dosage: 5 MG, 1X/DAY
     Route: 048
     Dates: start: 20101015
  11. TALION /01587402/ [Concomitant]
     Active Substance: BEPOTASTINE
     Indication: GENERALISED ERYTHEMA
     Dosage: UNK
     Route: 048
  12. TALION /01587402/ [Concomitant]
     Active Substance: BEPOTASTINE
     Dosage: 10 MG, TWICE DAILY, AFTER BREAKFAST AND DINNER
     Route: 048
     Dates: start: 20170810, end: 20170814
  13. FAMOTIDINE. [Concomitant]
     Active Substance: FAMOTIDINE
     Route: 048
  14. LAXOBERON [Concomitant]
     Active Substance: SODIUM PICOSULFATE
     Indication: CONSTIPATION
     Dosage: UNK UNK, AS NEEDED
     Route: 048
     Dates: start: 20170622

REACTIONS (2)
  - Generalised erythema [Recovered/Resolved]
  - Off label use [Unknown]

NARRATIVE: CASE EVENT DATE: 20170728
